FAERS Safety Report 11224067 (Version 2)
Quarter: 2015Q3

REPORT INFORMATION
  Report Type: Report from Study
  Country: AR (occurrence: AR)
  Receive Date: 20150629
  Receipt Date: 20150713
  Transmission Date: 20151125
  Serious: Yes (Hospitalization, Other)
  Sender: FDA-Public Use
  Company Number: PHHY2015AR073372

PATIENT
  Sex: Male

DRUGS (3)
  1. VALPROATE MAGNESIUM [Concomitant]
     Active Substance: VALPROATE MAGNESIUM
     Indication: PRODUCT USED FOR UNKNOWN INDICATION
     Dosage: 800 MG, QD
     Route: 065
  2. DIOVAN D [Suspect]
     Active Substance: HYDROCHLOROTHIAZIDE\VALSARTAN
     Indication: HYPERTENSION
     Dosage: 2 DF, QD
     Route: 065
  3. CARVEDILOL. [Concomitant]
     Active Substance: CARVEDILOL
     Indication: PRODUCT USED FOR UNKNOWN INDICATION
     Dosage: 18.75 MG, QD
     Route: 065

REACTIONS (8)
  - Chronic obstructive pulmonary disease [Recovering/Resolving]
  - Seizure [Unknown]
  - Arrhythmia [Unknown]
  - Sciatic nerve injury [Unknown]
  - Nervous system disorder [Unknown]
  - Blood pressure increased [Recovering/Resolving]
  - Cardiac murmur [Unknown]
  - Malaise [Unknown]
